FAERS Safety Report 21032143 (Version 1)
Quarter: 2022Q3

REPORT INFORMATION
  Report Type: Spontaneous
  Country: DE (occurrence: DE)
  Receive Date: 20220701
  Receipt Date: 20220701
  Transmission Date: 20221026
  Serious: Yes (Death, Other)
  Sender: FDA-Public Use
  Company Number: DE-DCGMA-21194042

PATIENT
  Age: 72 Year
  Sex: Male

DRUGS (1)
  1. ENTECAVIR [Suspect]
     Active Substance: ENTECAVIR
     Indication: Chronic hepatitis B
     Dosage: .5 MILLIGRAM DAILY; UNIT DOSE: 0.5 MG, FREQUENCY: EVERY DAYS, DURATION: 2 MONTHS
     Route: 048

REACTIONS (4)
  - Hepatic encephalopathy [Fatal]
  - Hepatorenal syndrome [Fatal]
  - Lactic acidosis [Fatal]
  - Chronic hepatic failure [Fatal]

NARRATIVE: CASE EVENT DATE: 20210930
